FAERS Safety Report 13778336 (Version 1)
Quarter: 2017Q3

REPORT INFORMATION
  Report Type: Report from Study
  Country: PH (occurrence: PH)
  Receive Date: 20170721
  Receipt Date: 20170721
  Transmission Date: 20171127
  Serious: Yes (Other)
  Sender: FDA-Public Use
  Company Number: PH-009507513-1707PHL005316

PATIENT
  Sex: Female

DRUGS (1)
  1. COZAAR [Suspect]
     Active Substance: LOSARTAN POTASSIUM
     Indication: HYPERTENSION
     Dosage: 50 MG (ONE TABLET) DAILY
     Route: 048
     Dates: start: 2012

REACTIONS (4)
  - Adverse event [Unknown]
  - Diabetes mellitus [Recovered/Resolved with Sequelae]
  - Blood pressure increased [Recovered/Resolved]
  - Heat stroke [Recovered/Resolved]
